FAERS Safety Report 24041318 (Version 1)
Quarter: 2024Q3

REPORT INFORMATION
  Report Type: Report from Study
  Country: US (occurrence: US)
  Receive Date: 20240702
  Receipt Date: 20240702
  Transmission Date: 20241016
  Serious: No
  Sender: AGIOS PHARMACEUTICALS
  Company Number: US-AGIOS-2406US03810

PATIENT
  Sex: Female

DRUGS (1)
  1. MITAPIVAT [Suspect]
     Active Substance: MITAPIVAT
     Indication: Product used for unknown indication
     Dosage: 50 MILLIGRAM
     Route: 065
     Dates: start: 20231107

REACTIONS (1)
  - Abdominal discomfort [Unknown]
